FAERS Safety Report 15697417 (Version 2)
Quarter: 2019Q1

REPORT INFORMATION
  Report Type: Report from Study
  Country: None (occurrence: RO)
  Receive Date: 20181207
  Receipt Date: 20190122
  Transmission Date: 20190417
  Serious: Yes (Death)
  Sender: FDA-Public Use
  Company Number: RO-ABBVIE-18S-135-2580384-00

PATIENT
  Age: 69 Year
  Sex: Male

DRUGS (5)
  1. EXVIERA [Suspect]
     Active Substance: DASABUVIR
     Indication: HEPATIC CIRRHOSIS
  2. ASPIRIN. [Concomitant]
     Active Substance: ASPIRIN
     Indication: ARTERIOSCLEROSIS
     Route: 048
     Dates: start: 2015, end: 2018
  3. VIEKIRAX [Suspect]
     Active Substance: OMBITASVIR\PARITAPREVIR\RITONAVIR
     Indication: HEPATITIS C
     Dosage: REPORTED BY PHYSICIAN: 137.5 MG
     Route: 048
     Dates: start: 20180626, end: 20180917
  4. EXVIERA [Suspect]
     Active Substance: DASABUVIR
     Indication: HEPATITIS C
     Dosage: REPORTED BY PHYSICIAN: 500 MG
     Route: 048
     Dates: start: 20180626, end: 20180917
  5. VIEKIRAX [Suspect]
     Active Substance: OMBITASVIR\PARITAPREVIR\RITONAVIR
     Indication: HEPATIC CIRRHOSIS

REACTIONS (5)
  - Feeding disorder [Fatal]
  - Acute respiratory failure [Fatal]
  - Lung infection [Fatal]
  - Haematemesis [Fatal]
  - Pallor [Fatal]

NARRATIVE: CASE EVENT DATE: 20181029
